FAERS Safety Report 18866494 (Version 1)
Quarter: 2021Q1

REPORT INFORMATION
  Report Type: Spontaneous
  Country: LT (occurrence: LT)
  Receive Date: 20210208
  Receipt Date: 20210208
  Transmission Date: 20210420
  Serious: Yes (Other)
  Sender: FDA-Public Use
  Company Number: LT-009507513-2102LTU001963

PATIENT
  Sex: Female

DRUGS (1)
  1. KEYTRUDA [Suspect]
     Active Substance: PEMBROLIZUMAB
     Indication: TRANSITIONAL CELL CARCINOMA

REACTIONS (4)
  - Pneumonitis [Recovered/Resolved]
  - Autoimmune thyroiditis [Recovered/Resolved]
  - C-reactive protein increased [Unknown]
  - Respiratory failure [Unknown]
